FAERS Safety Report 6013584-7 (Version None)
Quarter: 2008Q4

REPORT INFORMATION
  Report Type: 
  Country: None (occurrence: None)
  Receive Date: 20081218
  Receipt Date: 20081218
  Transmission Date: 20090506
  Serious: Yes (Other)
  Sender: FDA-Public Use
  Company Number: None

PATIENT
  Age: 38 Year
  Sex: Female

DRUGS (1)
  1. ROPINIROLE HYDROCHLORIDE [Suspect]
     Indication: MUSCLE SPASMS
     Dosage: TAKE 1 TABLET AT BEDTIME  3-4 WEEKS
     Route: 048

REACTIONS (2)
  - DRUG EFFECT DECREASED [None]
  - PRODUCT QUALITY ISSUE [None]
